FAERS Safety Report 23813419 (Version 1)
Quarter: 2024Q2

REPORT INFORMATION
  Report Type: Other
  Country: IN (occurrence: None)
  Receive Date: 20240503
  Receipt Date: 20240503
  Transmission Date: 20240716
  Serious: Yes (Death, Hospitalization, Other)
  Sender: FDA-Public Use
  Company Number: IN-ROCHE-2086069

PATIENT
  Age: 72 Year
  Sex: Female

DRUGS (3)
  1. TRASTUZUMAB [Suspect]
     Active Substance: TRASTUZUMAB
     Indication: Breast cancer metastatic
     Route: 041
     Dates: start: 20180215
  2. PERJETA [Suspect]
     Active Substance: PERTUZUMAB
     Indication: Breast cancer metastatic
     Dosage: INJECTION
     Route: 042
     Dates: start: 20190329
  3. KADCYLA [Suspect]
     Active Substance: ADO-TRASTUZUMAB EMTANSINE
     Indication: Breast cancer metastatic
     Route: 042
     Dates: start: 20200806, end: 20210517

REACTIONS (12)
  - Death [Fatal]
  - Disease recurrence [Unknown]
  - Pulmonary mass [Unknown]
  - Pulmonary oedema [Unknown]
  - Dyspnoea [Unknown]
  - COVID-19 [Unknown]
  - Diarrhoea [Unknown]
  - Gastric infection [Unknown]
  - Abdominal pain upper [Unknown]
  - Asthenia [Unknown]
  - Off label use [Unknown]
  - Pneumonia [Unknown]

NARRATIVE: CASE EVENT DATE: 20221015
